FAERS Safety Report 5227180-2 (Version None)
Quarter: 2007Q1

REPORT INFORMATION
  Report Type: 
  Country: None (occurrence: None)
  Receive Date: 20070130
  Receipt Date: 20070118
  Transmission Date: 20070707
  Serious: Yes (Hospitalization, Disabling)
  Sender: FDA-Public Use
  Company Number: 2007RR-05436

PATIENT
  Age: 65 Year
  Sex: Female

DRUGS (2)
  1. FENOFIBRATE [Suspect]
  2. WARFARIN SODIUM [Suspect]

REACTIONS (9)
  - ATRIAL FIBRILLATION [None]
  - CARDIOMYOPATHY [None]
  - COAGULOPATHY [None]
  - DRUG INTERACTION [None]
  - GASTROINTESTINAL HAEMORRHAGE [None]
  - HAEMARTHROSIS [None]
  - INTERNATIONAL NORMALISED RATIO INCREASED [None]
  - NORMOCHROMIC NORMOCYTIC ANAEMIA [None]
  - RENAL FAILURE ACUTE [None]
